FAERS Safety Report 4464020-3 (Version None)
Quarter: 2004Q4

REPORT INFORMATION
  Report Type: 
  Country: None (occurrence: None)
  Receive Date: 20041001
  Receipt Date: 20040902
  Transmission Date: 20050328
  Serious: Yes (Hospitalization, Other)
  Sender: FDA-Public Use
  Company Number: AR-ABBOTT-04P-007-0272715-00

PATIENT
  Age: 49 Year
  Sex: Female

DRUGS (8)
  1. VALCOTE [Suspect]
     Indication: EPILEPSY
     Route: 048
     Dates: start: 20040806, end: 20040816
  2. VALCOTE [Suspect]
     Dosage: 500MG AM/500MG AFTERNOON, 250 MG/NIGHT
     Route: 048
     Dates: start: 20040816
  3. VALCOTE [Suspect]
     Dates: start: 20040730, end: 20040806
  4. PHENOBARBITAL TAB [Concomitant]
     Indication: EPILEPSY
     Route: 048
     Dates: end: 20040806
  5. PHENOBARBITAL TAB [Concomitant]
     Route: 048
     Dates: start: 20040806, end: 20040915
  6. CARBAMAZEPINE [Concomitant]
     Indication: EPILEPSY
     Route: 065
     Dates: end: 20040730
  7. CARBAMAZEPINE [Concomitant]
     Route: 048
     Dates: start: 20040730, end: 20040806
  8. CARBAMAZEPINE [Concomitant]
     Route: 048
     Dates: start: 20040816, end: 20040915

REACTIONS (6)
  - AGGRESSION [None]
  - CONFUSIONAL STATE [None]
  - CONVERSION DISORDER [None]
  - HALLUCINATION [None]
  - LIBIDO INCREASED [None]
  - NERVOUSNESS [None]
